FAERS Safety Report 9174634 (Version 2)
Quarter: 2013Q2

REPORT INFORMATION
  Report Type: Spontaneous
  Country: US (occurrence: None)
  Receive Date: 20130313
  Receipt Date: 20130418
  Transmission Date: 20140414
  Serious: Yes (Hospitalization)
  Sender: FDA-Public Use
  Company Number: UTC-029954

PATIENT
  Age: 45 Year
  Sex: Female
  Weight: 55.9 kg

DRUGS (3)
  1. REMODULIN [Suspect]
     Indication: COR PULMONALE CHRONIC
     Dosage: (0.011 UG/KG, I IN 1 MIN) , SC
     Route: 058
     Dates: start: 20090706
  2. ADCIRCA (TADALAFIL) [Concomitant]
  3. LETAIRIS (AMBRISENTAN) [Concomitant]

REACTIONS (3)
  - Epistaxis [None]
  - Vomiting [None]
  - Headache [None]
